FAERS Safety Report 7705882-3 (Version None)
Quarter: 2011Q3

REPORT INFORMATION
  Report Type: 
  Country: None (occurrence: None)
  Receive Date: 20110824
  Receipt Date: 20110818
  Transmission Date: 20111222
  Serious: Yes (Hospitalization)
  Sender: FDA-Public Use
  Company Number: US-B.I. PHARMACEUTICALS,INC./RIDGEFIELD-2011-BP-20306BP

PATIENT
  Age: 85 Year
  Sex: Female

DRUGS (15)
  1. ASPIRIN [Suspect]
     Dosage: 325 MG
     Route: 048
     Dates: start: 20110501
  2. POTASSIUM [Concomitant]
     Indication: BLOOD POTASSIUM ABNORMAL
     Dosage: 40 MEQ
     Route: 048
  3. BENICAR [Concomitant]
     Indication: HYPERTENSION
     Dosage: 40 MG
     Route: 048
  4. ASPIRIN [Suspect]
     Indication: ATRIAL FIBRILLATION
     Dosage: 162 MG
     Route: 048
     Dates: start: 20090101, end: 20110501
  5. XANAX [Concomitant]
     Indication: INSOMNIA
     Dosage: 0.5 MG
     Route: 048
  6. SYNTHROID [Concomitant]
     Indication: HYPOTHYROIDISM
     Dosage: 0.15 MG
     Route: 048
     Dates: start: 19850101
  7. CRESTOR [Concomitant]
     Indication: BLOOD CHOLESTEROL INCREASED
     Dosage: 40 MG
     Route: 048
     Dates: start: 20100101
  8. METOPROLOL [Concomitant]
     Indication: HYPERTENSION
     Dosage: 200 MG
     Route: 048
  9. NEXIUM [Concomitant]
     Indication: GASTROOESOPHAGEAL REFLUX DISEASE
     Dosage: 40 MG
  10. PRADAXA [Suspect]
     Indication: ATRIAL FIBRILLATION
     Dosage: 300 MG
     Route: 048
     Dates: start: 20101101, end: 20110501
  11. DIGOXIN [Concomitant]
     Indication: ATRIAL FIBRILLATION
     Dosage: 0.125 MG
     Route: 048
  12. VERAPAMIL [Concomitant]
     Indication: HYPERTENSION
     Dosage: 240 MG
     Route: 048
  13. LASIX [Concomitant]
     Indication: OEDEMA
     Dosage: 20 MG
     Route: 048
  14. LEXAPRO [Concomitant]
     Indication: DEPRESSION
     Dosage: 20 MG
     Route: 048
  15. MULTAQ [Concomitant]
     Indication: ATRIAL FIBRILLATION
     Dosage: 800 MG

REACTIONS (1)
  - HAEMATOCHEZIA [None]
